FAERS Safety Report 5895362-2 (Version None)
Quarter: 2008Q3

REPORT INFORMATION
  Report Type: 
  Country: None (occurrence: None)
  Receive Date: 20080923
  Receipt Date: 20080923
  Transmission Date: 20090109
  Serious: No
  Sender: FDA-Public Use
  Company Number: None

PATIENT
  Age: 25 Year
  Sex: Female
  Weight: 63.5036 kg

DRUGS (1)
  1. YAZ [Suspect]
     Dates: start: 20080806

REACTIONS (2)
  - BREAST PAIN [None]
  - BREAST TENDERNESS [None]
